FAERS Safety Report 11809617 (Version 1)
Quarter: 2015Q4

REPORT INFORMATION
  Report Type: Spontaneous
  Country: US (occurrence: US)
  Receive Date: 20151208
  Receipt Date: 20151208
  Transmission Date: 20160305
  Serious: Yes (Congenital Anomaly)
  Sender: FDA-Public Use
  Company Number: US-RECORDATI RARE DISEASES-US-R13005-15-00191

PATIENT
  Sex: Male
  Weight: 3.13 kg

DRUGS (1)
  1. METHAMPHETAMINE [Suspect]
     Active Substance: METHAMPHETAMINE
     Indication: PRODUCT USED FOR UNKNOWN INDICATION
     Route: 064

REACTIONS (4)
  - Congenital multiplex arthrogryposis [Not Recovered/Not Resolved]
  - Caudal regression syndrome [Not Recovered/Not Resolved]
  - Respiratory distress [Unknown]
  - Foetal exposure during pregnancy [Recovered/Resolved]
